FAERS Safety Report 4441989-4 (Version None)
Quarter: 2004Q3

REPORT INFORMATION
  Report Type: 
  Country: None (occurrence: None)
  Receive Date: 20040907
  Receipt Date: 20040826
  Transmission Date: 20050211
  Serious: Yes (Other)
  Sender: FDA-Public Use
  Company Number: CH-GLAXOSMITHKLINE-B0344090A

PATIENT
  Sex: Female
  Weight: 60 kg

DRUGS (2)
  1. ZYBAN [Suspect]
     Dosage: 300MG PER DAY
     Route: 048
     Dates: start: 20031211, end: 20040101
  2. COAPROVEL [Suspect]
     Indication: ESSENTIAL HYPERTENSION
     Route: 048

REACTIONS (7)
  - CONFUSIONAL STATE [None]
  - CRYING [None]
  - DEPRESSED MOOD [None]
  - DEPRESSION [None]
  - DRUG WITHDRAWAL SYNDROME [None]
  - FATIGUE [None]
  - FEELING ABNORMAL [None]
